FAERS Safety Report 8957532 (Version 1)
Quarter: 2012Q4

REPORT INFORMATION
  Report Type: 
  Country: US (occurrence: US)
  Receive Date: 20121211
  Receipt Date: 20121211
  Transmission Date: 20130627
  Serious: No
  Sender: FDA-Public Use
  Company Number: US-ROXANE LABORATORIES, INC.-2012-RO-02508RO

PATIENT
  Age: 50 Year
  Sex: Male

DRUGS (1)
  1. HYDROMORPHONE [Suspect]
     Indication: BACK PAIN
     Route: 048

REACTIONS (1)
  - Abdominal discomfort [Not Recovered/Not Resolved]
